FAERS Safety Report 5879854-8 (Version None)
Quarter: 2008Q3

REPORT INFORMATION
  Report Type: 
  Country: None (occurrence: None)
  Receive Date: 20080912
  Receipt Date: 20080901
  Transmission Date: 20090109
  Serious: Yes (Death, Hospitalization)
  Sender: FDA-Public Use
  Company Number: GB-ROCHE-584820

PATIENT
  Sex: Female

DRUGS (7)
  1. CAPECITABINE [Suspect]
     Dosage: LATEST CYCLE ADMINISTERED: 05 SEPTEMBER 2008
     Route: 048
     Dates: start: 20080403
  2. OXALIPLATIN [Suspect]
     Dosage: LASTEST CYCLE ADMINISTERED: 05 SEPTEMBER 2008
     Route: 042
     Dates: start: 20080403
  3. ATENOLOL [Concomitant]
     Route: 048
  4. SIMVASTATIN [Concomitant]
     Route: 048
  5. OXYCODONE HCL [Concomitant]
     Route: 048
     Dates: start: 20080401
  6. METOCLOPRAMIDE [Concomitant]
     Route: 048
     Dates: start: 20080401
  7. OMEPRAZOLE [Concomitant]
     Route: 048

REACTIONS (6)
  - ASTHENIA [None]
  - BRONCHOPULMONARY ASPERGILLOSIS [None]
  - LETHARGY [None]
  - LYMPHOPENIA [None]
  - NEUTROPENIA [None]
  - THROMBOCYTOPENIA [None]
